FAERS Safety Report 7302956-6 (Version None)
Quarter: 2011Q1

REPORT INFORMATION
  Report Type: 
  Country: None (occurrence: None)
  Receive Date: 20110220
  Receipt Date: 20110124
  Transmission Date: 20110831
  Serious: Yes (Hospitalization, Other)
  Sender: FDA-Public Use
  Company Number: PL-BAYER-2011-007511

PATIENT
  Sex: Female
  Weight: 70 kg

DRUGS (13)
  1. KALIPOZ [Concomitant]
  2. BONIVA [Concomitant]
     Dosage: UNK
  3. BI-PROFENID [Suspect]
     Indication: PRODUCT USED FOR UNKNOWN INDICATION
     Route: 048
     Dates: end: 20101015
  4. FUROSEMIDE [Concomitant]
  5. MAJAMIL [Suspect]
     Indication: OSTEOARTHRITIS
     Route: 048
     Dates: end: 20101015
  6. DIGOXIN [Concomitant]
     Dosage: UNK
  7. ACARD [Concomitant]
     Dosage: UNK
  8. CALCIUM D [Concomitant]
     Dosage: UNK
  9. VEROSPIRON [Concomitant]
     Dosage: UNK
  10. VIVACOR [CARVEDILOL] [Concomitant]
     Dosage: UNK
  11. RAMIPRIL [Concomitant]
     Dosage: UNK
  12. UNCODEABLE ^UNCLASSIFIABLE^ [Concomitant]
     Dosage: UNK
  13. ALEVE [Suspect]
     Route: 048
     Dates: end: 20101015

REACTIONS (3)
  - CARDIAC FAILURE [None]
  - DYSPNOEA [None]
  - OEDEMA PERIPHERAL [None]
